FAERS Safety Report 5059225-7 (Version None)
Quarter: 2006Q3

REPORT INFORMATION
  Report Type: 
  Country: None (occurrence: None)
  Receive Date: 20060718
  Receipt Date: 20060705
  Transmission Date: 20061208
  Serious: Yes (Hospitalization)
  Sender: FDA-Public Use
  Company Number: 2006084013

PATIENT
  Age: 39 Year
  Sex: Male

DRUGS (3)
  1. VORICONAZOLE (VORICONAZOLE) [Suspect]
     Indication: BRONCHOPULMONARY ASPERGILLOSIS
     Dosage: 6 MG/KG, INTRAVENOUS; SEE IMAGE
     Route: 042
  2. ALL OTHER THERAPEUTIC PRODUCTS (ALL OTHER THERAPEUTIC PRODUCTS) [Concomitant]
  3. DEXAMETHASONE [Concomitant]

REACTIONS (4)
  - HAEMATURIA [None]
  - PHOTOPHOBIA [None]
  - PSEUDOMONAS INFECTION [None]
  - TOXIC EPIDERMAL NECROLYSIS [None]
